FAERS Safety Report 7636702-3 (Version None)
Quarter: 2011Q3

REPORT INFORMATION
  Report Type: 
  Country: None (occurrence: None)
  Receive Date: 20110726
  Receipt Date: 20110715
  Transmission Date: 20111222
  Serious: Yes (Hospitalization)
  Sender: FDA-Public Use
  Company Number: DE-TEVA-291415GER

PATIENT
  Sex: Male
  Weight: 125 kg

DRUGS (2)
  1. PACLITAXEL [Suspect]
     Dosage: 174.27 MG/M2;
     Route: 042
     Dates: start: 20110601
  2. CISPLATIN [Suspect]
     Dosage: 50.17 MG/M2;
     Route: 042
     Dates: start: 20110601

REACTIONS (2)
  - PULMONARY EMBOLISM [None]
  - DEEP VEIN THROMBOSIS [None]
